FAERS Safety Report 23897841 (Version 1)
Quarter: 2024Q2

REPORT INFORMATION
  Report Type: Spontaneous
  Country: CN (occurrence: CN)
  Receive Date: 20240524
  Receipt Date: 20240524
  Transmission Date: 20240716
  Serious: Yes (Hospitalization, Other)
  Sender: FDA-Public Use
  Company Number: CN-TAKEDA-2024TUS050201

PATIENT
  Age: 34 Year
  Sex: Female
  Weight: 57 kg

DRUGS (3)
  1. ADCETRIS [Suspect]
     Active Substance: BRENTUXIMAB VEDOTIN
     Indication: Neoplasm malignant
     Dosage: 50 MILLIGRAM, QD
     Route: 065
     Dates: start: 20240429, end: 20240429
  2. EPIRUBICIN HYDROCHLORIDE [Suspect]
     Active Substance: EPIRUBICIN HYDROCHLORIDE
     Indication: Neoplasm malignant
     Dosage: 110 MILLIGRAM, QD
     Route: 041
     Dates: start: 20240430, end: 20240430
  3. CYCLOPHOSPHAMIDE [Suspect]
     Active Substance: CYCLOPHOSPHAMIDE
     Indication: Neoplasm malignant
     Dosage: 1.2 GRAM, QD
     Route: 041
     Dates: start: 20240430, end: 20240430

REACTIONS (2)
  - Myelosuppression [Recovering/Resolving]
  - Pyrexia [Recovered/Resolved]

NARRATIVE: CASE EVENT DATE: 20240510
